FAERS Safety Report 14345013 (Version 1)
Quarter: 2018Q1

REPORT INFORMATION
  Report Type: Report from Study
  Country: CA (occurrence: CA)
  Receive Date: 20180103
  Receipt Date: 20180103
  Transmission Date: 20180509
  Serious: Yes (Death)
  Sender: FDA-Public Use
  Company Number: CA-ASTRAZENECA-2018SE00653

PATIENT
  Age: 86 Year
  Sex: Female

DRUGS (1)
  1. TAGRISSO [Suspect]
     Active Substance: OSIMERTINIB
     Indication: LUNG DISORDER
     Route: 048
     Dates: start: 20171208, end: 20171217

REACTIONS (1)
  - Death [Fatal]

NARRATIVE: CASE EVENT DATE: 20171217
